FAERS Safety Report 12935260 (Version 1)
Quarter: 2016Q4

REPORT INFORMATION
  Report Type: Spontaneous
  Country: US (occurrence: US)
  Receive Date: 20161114
  Receipt Date: 20161114
  Transmission Date: 20170207
  Serious: No
  Sender: FDA-Public Use
  Company Number: US-JAZZ-2016-US-018496

PATIENT
  Sex: Male

DRUGS (16)
  1. ASPIRIN                            /00002701/ [Concomitant]
     Active Substance: ASPIRIN
  2. ENALAPRIL                          /00574902/ [Concomitant]
     Active Substance: ENALAPRIL
  3. KETOCONAZOLE. [Concomitant]
     Active Substance: KETOCONAZOLE
  4. FLUOCINONIDE. [Concomitant]
     Active Substance: FLUOCINONIDE
  5. XYREM [Suspect]
     Active Substance: SODIUM OXYBATE
     Dosage: 3 G, BID
     Route: 048
     Dates: start: 200804, end: 200807
  6. OMEPRAZOLE DR                         /00661202/ [Concomitant]
  7. CLARITIN [Concomitant]
     Active Substance: LORATADINE
  8. ANDRODERM [Concomitant]
     Active Substance: TESTOSTERONE
  9. ANDROGEL [Concomitant]
     Active Substance: TESTOSTERONE
  10. WELLBUTRIN [Concomitant]
     Active Substance: BUPROPION HYDROCHLORIDE
  11. NASONEX [Concomitant]
     Active Substance: MOMETASONE FUROATE
  12. ACYCLOVIR                          /00587301/ [Concomitant]
     Active Substance: ACYCLOVIR
  13. XYREM [Suspect]
     Active Substance: SODIUM OXYBATE
     Indication: NARCOLEPSY
     Dosage: 2.25 G, BID
     Route: 048
     Dates: start: 200803, end: 200804
  14. XYREM [Suspect]
     Active Substance: SODIUM OXYBATE
     Dosage: 3.75 G, BID
     Route: 048
     Dates: start: 200807
  15. LISINOPRIL                         /00894002/ [Concomitant]
     Active Substance: LISINOPRIL
  16. LIPITOR [Concomitant]
     Active Substance: ATORVASTATIN CALCIUM

REACTIONS (1)
  - Intentional product use issue [Unknown]
